FAERS Safety Report 9205982 (Version 1)
Quarter: 2013Q2

REPORT INFORMATION
  Report Type: Spontaneous
  Country: US (occurrence: None)
  Receive Date: 20130401
  Receipt Date: 20130401
  Transmission Date: 20140414
  Serious: No
  Sender: FDA-Public Use
  Company Number: None

PATIENT
  Age: 55 Year
  Sex: Female
  Weight: 82 kg

DRUGS (1)
  1. EPINEPHRINE\LIDOCAINE [Suspect]
     Indication: ANAESTHESIA PROCEDURE
     Dosage: UD
     Route: 050
     Dates: start: 20130118, end: 20130118

REACTIONS (2)
  - Nausea [None]
  - Vomiting [None]
